FAERS Safety Report 22273699 (Version 2)
Quarter: 2023Q2

REPORT INFORMATION
  Report Type: Spontaneous
  Country: US (occurrence: US)
  Receive Date: 20230502
  Receipt Date: 20230517
  Transmission Date: 20230722
  Serious: Yes (Hospitalization, Other)
  Sender: FDA-Public Use
  Company Number: US-PFIZER INC-202300172178

PATIENT
  Age: 29 Year
  Sex: Female
  Weight: 124.7 kg

DRUGS (1)
  1. CYTOTEC [Suspect]
     Active Substance: MISOPROSTOL
     Indication: Abortion
     Dosage: UNK
     Dates: start: 20230209

REACTIONS (6)
  - Haemorrhage [Unknown]
  - Abortion induced [Unknown]
  - Retained products of conception [Unknown]
  - Vaginal haemorrhage [Unknown]
  - Drug ineffective for unapproved indication [Unknown]
  - Off label use [Unknown]
